FAERS Safety Report 5713320-5 (Version None)
Quarter: 2008Q2

REPORT INFORMATION
  Report Type: 
  Country: None (occurrence: None)
  Receive Date: 20080418
  Receipt Date: 20080408
  Transmission Date: 20081010
  Serious: Yes (Hospitalization)
  Sender: FDA-Public Use
  Company Number: SPV1-2008-00598

PATIENT
  Age: 10 Year
  Sex: Male
  Weight: 31.7 kg

DRUGS (4)
  1. DAYTRANA [Suspect]
     Indication: ATTENTION DEFICIT/HYPERACTIVITY DISORDER
     Dosage: 10 MG, 1X/DAY;QD, TRANSDERMAL; 15 MG, 1X/DAY;QD, TRANSDERMAL; 20 MG, 1X/DAY, QD, TRANSDERMAL
     Route: 062
     Dates: start: 20060701, end: 20070101
  2. DAYTRANA [Suspect]
     Indication: ATTENTION DEFICIT/HYPERACTIVITY DISORDER
     Dosage: 10 MG, 1X/DAY;QD, TRANSDERMAL; 15 MG, 1X/DAY;QD, TRANSDERMAL; 20 MG, 1X/DAY, QD, TRANSDERMAL
     Route: 062
     Dates: start: 20070101, end: 20080201
  3. DAYTRANA [Suspect]
     Indication: ATTENTION DEFICIT/HYPERACTIVITY DISORDER
     Dosage: 10 MG, 1X/DAY;QD, TRANSDERMAL; 15 MG, 1X/DAY;QD, TRANSDERMAL; 20 MG, 1X/DAY, QD, TRANSDERMAL
     Route: 062
     Dates: start: 20080201
  4. LEXAPRO [Concomitant]

REACTIONS (7)
  - DECREASED APPETITE [None]
  - DRUG INEFFECTIVE [None]
  - EDUCATIONAL PROBLEM [None]
  - GROWTH ACCELERATED [None]
  - INCREASED APPETITE [None]
  - PELVI-URETERIC OBSTRUCTION [None]
  - PHARMACEUTICAL PRODUCT COMPLAINT [None]
